FAERS Safety Report 14805287 (Version 1)
Quarter: 2018Q2

REPORT INFORMATION
  Report Type: Spontaneous
  Country: US (occurrence: US)
  Receive Date: 20180425
  Receipt Date: 20180425
  Transmission Date: 20180711
  Serious: No
  Sender: FDA-Public Use
  Company Number: US-MISSION PHARMACAL COMPANY-2046464

PATIENT
  Age: 67 Year
  Sex: Female

DRUGS (1)
  1. THIOLA [Suspect]
     Active Substance: TIOPRONIN
     Indication: CYSTINURIA
     Dates: start: 20141101

REACTIONS (5)
  - Alanine aminotransferase increased [Unknown]
  - Blood creatine increased [Unknown]
  - Aspartate aminotransferase increased [Unknown]
  - Renal cyst [Unknown]
  - Blood alkaline phosphatase increased [Unknown]

NARRATIVE: CASE EVENT DATE: 201803
